FAERS Safety Report 11400840 (Version 3)
Quarter: 2015Q3

REPORT INFORMATION
  Report Type: Report from Study
  Country: BE (occurrence: BE)
  Receive Date: 20150820
  Receipt Date: 20150928
  Transmission Date: 20151125
  Serious: Yes (Other)
  Sender: FDA-Public Use
  Company Number: BE-AMGEN-BELCT2015069860

PATIENT
  Age: 34 Year
  Sex: Male
  Weight: 67.6 kg

DRUGS (23)
  1. CEFEPIME [Concomitant]
     Active Substance: CEFEPIME HYDROCHLORIDE
     Dosage: 2 G, UNK
     Route: 042
     Dates: start: 20150708, end: 20150727
  2. XANAX [Concomitant]
     Active Substance: ALPRAZOLAM
     Dosage: 0.25 MG, UNK
     Route: 048
     Dates: start: 20150708, end: 20150708
  3. ARACYTINE [Concomitant]
     Active Substance: CYTARABINE
     Dosage: 40 MG, UNK
     Route: 037
     Dates: start: 20150702, end: 20150702
  4. GLYCEROPHOSPHATE [Concomitant]
     Dosage: 20 UNK, UNK
     Route: 042
     Dates: start: 20150710, end: 20150712
  5. LASIX [Concomitant]
     Active Substance: FUROSEMIDE
     Dosage: 20 MG, UNK
     Route: 042
     Dates: start: 20150710
  6. MAGNESIUM SULFATE. [Concomitant]
     Active Substance: MAGNESIUM SULFATE
     Dosage: 2 G, UNK
     Route: 042
     Dates: start: 20150709, end: 20150709
  7. ZOFRAN [Concomitant]
     Active Substance: ONDANSETRON HYDROCHLORIDE
     Dosage: 8 MG, UNK
     Route: 042
     Dates: start: 20150709, end: 20150712
  8. FOLAVIT [Concomitant]
     Dosage: 4 MG, UNK
     Route: 048
     Dates: start: 20150709, end: 20150709
  9. BLINATUMOMAB [Suspect]
     Active Substance: BLINATUMOMAB
     Indication: ACUTE LYMPHOCYTIC LEUKAEMIA
     Dosage: 9 MUG, QD
     Route: 041
     Dates: start: 20150708
  10. ZOVIRAX [Concomitant]
     Active Substance: ACYCLOVIR
     Dosage: 400 MG, UNK
     Route: 048
     Dates: start: 2014
  11. METHOTREXATE [Concomitant]
     Active Substance: METHOTREXATE
     Dosage: 15 MG, UNK
     Route: 037
     Dates: start: 20150702, end: 20150702
  12. POTASSIUM CHLORIDE. [Concomitant]
     Active Substance: POTASSIUM CHLORIDE
     Dosage: 40 MEQ, UNK
     Route: 042
     Dates: start: 20150710, end: 20150714
  13. EUSAPRIM                           /00086101/ [Concomitant]
     Active Substance: SULFAMETHOXAZOLE\TRIMETHOPRIM
     Dosage: 800 MG, UNK
     Route: 048
     Dates: start: 20140929
  14. NOVORAPID [Concomitant]
     Active Substance: INSULIN ASPART
     Dosage: UNK
     Route: 058
     Dates: start: 19850615
  15. AACIDEXAM                          /00016001/ [Concomitant]
     Dosage: 20 MG, UNK
     Route: 042
     Dates: start: 20150703, end: 20150720
  16. CLEXANE [Concomitant]
     Active Substance: ENOXAPARIN SODIUM
     Dosage: 40 MG, UNK
     Route: 058
     Dates: start: 20150708, end: 20150726
  17. PANTOMED                           /00178901/ [Concomitant]
     Dosage: 40 MG, UNK
     Route: 048
     Dates: start: 2014
  18. DAFALGAN [Concomitant]
     Active Substance: ACETAMINOPHEN
     Dosage: 1 G, UNK
     Route: 048
     Dates: start: 20150708, end: 20150710
  19. VITAMIN D                          /00107901/ [Concomitant]
     Active Substance: ERGOCALCIFEROL
     Dosage: 25000 IU, UNK
     Route: 048
     Dates: start: 20150709
  20. ALLOPURINOL. [Concomitant]
     Active Substance: ALLOPURINOL
     Dosage: 300 MG, UNK
     Route: 048
     Dates: start: 20150708, end: 20150712
  21. LANTUS [Concomitant]
     Active Substance: INSULIN GLARGINE
     Dosage: UNK
     Route: 058
     Dates: start: 1985
  22. DIFLUCAN [Concomitant]
     Active Substance: FLUCONAZOLE
     Dosage: 200 MG, UNK
     Route: 048
     Dates: start: 20150706, end: 20150709
  23. SODICO BICARBONATO [Concomitant]
     Dosage: 500 ML, UNK
     Route: 042
     Dates: start: 20150708, end: 20150713

REACTIONS (1)
  - Graft versus host disease [Recovered/Resolved]

NARRATIVE: CASE EVENT DATE: 20150711
